FAERS Safety Report 8766753 (Version 1)
Quarter: 2012Q4

REPORT INFORMATION
  Report Type: 
  Country: BR (occurrence: BR)
  Receive Date: 20120831
  Receipt Date: 20120831
  Transmission Date: 20130627
  Serious: Yes (Death)
  Sender: FDA-Public Use
  Company Number: BR-ASTELLAS-2012US007370

PATIENT
  Sex: Female

DRUGS (2)
  1. ERLOTINIB [Suspect]
     Indication: LUNG CANCER METASTATIC
     Dosage: 800 mg, UID/QD
     Route: 048
     Dates: start: 20080701, end: 20090701
  2. XELODA [Concomitant]
     Indication: LUNG CANCER METASTATIC
     Dosage: UNK
     Route: 065

REACTIONS (2)
  - Overdose [Unknown]
  - Death [Fatal]
